FAERS Safety Report 4844179-6 (Version None)
Quarter: 2005Q4

REPORT INFORMATION
  Report Type: 
  Country: None (occurrence: None)
  Receive Date: 20051202
  Receipt Date: 20051130
  Transmission Date: 20060501
  Serious: Yes (Other)
  Sender: FDA-Public Use
  Company Number: PHBS2005JP17650

PATIENT
  Age: 66 Year
  Sex: Female

DRUGS (1)
  1. FASTIC [Suspect]
     Dates: start: 20020701, end: 20020801

REACTIONS (1)
  - INTERSTITIAL LUNG DISEASE [None]
